FAERS Safety Report 5204356-1 (Version None)
Quarter: 2007Q1

REPORT INFORMATION
  Report Type: 
  Country: None (occurrence: None)
  Receive Date: 20070110
  Receipt Date: 20060227
  Transmission Date: 20070707
  Serious: No
  Sender: FDA-Public Use
  Company Number: US-BRISTOL-MYERS SQUIBB COMPANY-13297346

PATIENT
  Age: 19 Year
  Sex: Male
  Weight: 22 kg

DRUGS (2)
  1. ABILIFY [Suspect]
     Indication: ATTENTION DEFICIT/HYPERACTIVITY DISORDER
     Route: 048
     Dates: start: 20060217, end: 20060217
  2. ABILIFY [Suspect]
     Indication: AUTISM
     Route: 048
     Dates: start: 20060217, end: 20060217

REACTIONS (4)
  - ANOREXIA [None]
  - DIZZINESS [None]
  - FEELING HOT [None]
  - VOMITING [None]
